FAERS Safety Report 9183485 (Version 3)
Quarter: 2013Q2

REPORT INFORMATION
  Report Type: Report from Study
  Country: BR (occurrence: BR)
  Receive Date: 20130322
  Receipt Date: 20130510
  Transmission Date: 20140414
  Serious: Yes (Hospitalization, Other)
  Sender: FDA-Public Use
  Company Number: BR-ROCHE-1205080

PATIENT
  Age: 36 Year
  Sex: Female
  Weight: 52 kg

DRUGS (6)
  1. MABTHERA [Suspect]
     Indication: RHEUMATOID ARTHRITIS
     Route: 065
     Dates: start: 20110726, end: 20130503
  2. SELOZOK [Concomitant]
     Route: 065
  3. NIMODIPINE [Concomitant]
  4. PREDNISONE [Concomitant]
  5. ALENIA (BRAZIL) [Concomitant]
     Indication: ASTHMA
  6. SIMVASTATIN [Concomitant]

REACTIONS (16)
  - Cerebrovascular accident [Recovered/Resolved with Sequelae]
  - Visual field defect [Unknown]
  - Visual impairment [Not Recovered/Not Resolved]
  - Laryngeal oedema [Unknown]
  - Pain in extremity [Not Recovered/Not Resolved]
  - Arthralgia [Not Recovered/Not Resolved]
  - Hypertension [Unknown]
  - Arthralgia [Unknown]
  - Malaise [Unknown]
  - Asthenia [Unknown]
  - Vomiting [Unknown]
  - Headache [Unknown]
  - Drug ineffective [Unknown]
  - Pain [Unknown]
  - Blood triglycerides increased [Unknown]
  - Blood cholesterol increased [Unknown]
